FAERS Safety Report 10567346 (Version 1)
Quarter: 2014Q4

REPORT INFORMATION
  Report Type: Other
  Country: FI (occurrence: FI)
  Receive Date: 20141106
  Receipt Date: 20141106
  Transmission Date: 20150529
  Serious: Yes (Other)
  Sender: FDA-Public Use
  Company Number: FI-TAKEDA-2014TJP015118

PATIENT
  Age: 61 Year
  Sex: Female

DRUGS (8)
  1. METFORMIN [Concomitant]
     Active Substance: METFORMIN HYDROCHLORIDE
  2. ALENDRONATE [Concomitant]
     Active Substance: ALENDRONATE SODIUM
  3. ATORVASTATIN [Concomitant]
     Active Substance: ATORVASTATIN
  4. ACTOS [Suspect]
     Active Substance: PIOGLITAZONE HYDROCHLORIDE
     Indication: TYPE 2 DIABETES MELLITUS
     Dosage: 15 MG, QD
     Route: 048
     Dates: start: 20101006, end: 20140303
  5. PANADOL                            /00020001/ [Concomitant]
  6. JANUVIA [Concomitant]
     Active Substance: SITAGLIPTIN PHOSPHATE
  7. CYMBALTA [Concomitant]
     Active Substance: DULOXETINE HYDROCHLORIDE
  8. ATACAND [Concomitant]
     Active Substance: CANDESARTAN CILEXETIL

REACTIONS (18)
  - Osteonecrosis [Unknown]
  - Fall [Unknown]
  - Femur fracture [Unknown]
  - Osteoarthritis [Unknown]
  - Tibia fracture [Unknown]
  - Osteoporosis [Unknown]
  - Tendonitis [Unknown]
  - Fungal infection [Unknown]
  - Joint effusion [Unknown]
  - Haemangioma of bone [Unknown]
  - Dizziness [Unknown]
  - Meniscus injury [Unknown]
  - Intervertebral disc disorder [Unknown]
  - Hepatic steatosis [Unknown]
  - Exostosis [Unknown]
  - Arthralgia [Not Recovered/Not Resolved]
  - Hypotension [Unknown]
  - Bone disorder [Unknown]

NARRATIVE: CASE EVENT DATE: 201406
